FAERS Safety Report 18142188 (Version 2)
Quarter: 2020Q3

REPORT INFORMATION
  Report Type: Report from Study
  Country: US (occurrence: US)
  Receive Date: 20200812
  Receipt Date: 20200817
  Transmission Date: 20201103
  Serious: No
  Sender: FDA-Public Use
  Company Number: NVSC2020US219795

PATIENT
  Age: 71 Year
  Sex: Female

DRUGS (1)
  1. ENTRESTO [Suspect]
     Active Substance: SACUBITRIL\VALSARTAN
     Indication: CARDIAC FAILURE
     Dosage: UNK
     Route: 048
     Dates: start: 202004

REACTIONS (5)
  - Blood creatinine increased [Unknown]
  - Nausea [Unknown]
  - Vomiting [Unknown]
  - Urticaria [Unknown]
  - Taste disorder [Unknown]

NARRATIVE: CASE EVENT DATE: 202004
